FAERS Safety Report 7462362-0 (Version None)
Quarter: 2011Q2

REPORT INFORMATION
  Report Type: 
  Country: None (occurrence: None)
  Receive Date: 20110506
  Receipt Date: 20110429
  Transmission Date: 20111010
  Serious: Yes (Other)
  Sender: FDA-Public Use
  Company Number: CA-AMGEN-CANSP2011019517

PATIENT
  Age: 59 Year
  Sex: Female

DRUGS (2)
  1. ENBREL [Suspect]
     Indication: PSORIASIS
     Dosage: 50 MG, UNK
     Route: 058
     Dates: start: 20090309, end: 20110301
  2. CYCLOSPORINE [Suspect]
     Indication: PSORIASIS
     Dosage: 100 MG, BID
     Route: 048
     Dates: start: 20040101, end: 20100101

REACTIONS (3)
  - HEPATIC NEOPLASM MALIGNANT [None]
  - COLON CANCER STAGE 0 [None]
  - COLON CANCER METASTATIC [None]
